FAERS Safety Report 9685214 (Version 7)
Quarter: 2014Q2

REPORT INFORMATION
  Report Type: Spontaneous
  Country: JP (occurrence: JP)
  Receive Date: 20131113
  Receipt Date: 20140606
  Transmission Date: 20141212
  Serious: Yes (Hospitalization)
  Sender: FDA-Public Use
  Company Number: JP-AMGEN-JPNSP2013079427

PATIENT
  Age: 69 Year
  Sex: Male
  Weight: 70 kg

DRUGS (10)
  1. NESP [Suspect]
     Indication: NEPHROGENIC ANAEMIA
     Dosage: 120 MUG, QMO
     Route: 058
     Dates: start: 201204, end: 20131022
  2. LASIX                              /00032601/ [Concomitant]
     Indication: RENAL FAILURE
     Dosage: 40 MG, QD
     Route: 048
  3. ENALAPRIL [Concomitant]
     Indication: HYPERTENSION
     Dosage: 5 MG, QD
     Route: 048
  4. EQUA [Concomitant]
     Indication: DIABETES MELLITUS
     Dosage: 50 MG, QD
     Route: 048
  5. CONIEL [Concomitant]
     Indication: HYPERTENSION
     Dosage: 4 MG, BID
     Route: 048
  6. TAKEPRON [Concomitant]
     Indication: GASTRIC ULCER
     Dosage: 15 MG, BID
     Route: 048
  7. OLMETEC [Concomitant]
     Indication: HYPERTENSION
     Dosage: 20 MG, QD
     Route: 048
  8. SODIUM BICARBONATE [Concomitant]
     Indication: RENAL FAILURE
     Dosage: 1 G, BID
     Route: 048
  9. ETIZOLAM [Concomitant]
     Indication: INSOMNIA
     Dosage: 0.5 MG, BID
     Route: 048
  10. ALLOZYM [Concomitant]
     Indication: HYPERURICAEMIA
     Dosage: 100 MG, QD
     Route: 048

REACTIONS (1)
  - Aplasia pure red cell [Not Recovered/Not Resolved]
